FAERS Safety Report 18365956 (Version 3)
Quarter: 2021Q1

REPORT INFORMATION
  Report Type: Spontaneous
  Country: US (occurrence: US)
  Receive Date: 20201009
  Receipt Date: 20210120
  Transmission Date: 20210419
  Serious: Yes (Other)
  Sender: FDA-Public Use
  Company Number: US-PFIZER INC-2020288469

PATIENT
  Age: 55 Year
  Sex: Male

DRUGS (2)
  1. XELJANZ [Suspect]
     Active Substance: TOFACITINIB CITRATE
     Indication: RHEUMATOID ARTHRITIS
     Dosage: 5 MG, 2X/DAY
     Route: 048
     Dates: start: 20200630
  2. METHOTREXATE. [Concomitant]
     Active Substance: METHOTREXATE
     Indication: RHEUMATOID ARTHRITIS
     Dosage: UNK

REACTIONS (7)
  - Finger deformity [Unknown]
  - Asthenia [Unknown]
  - Mental disorder due to a general medical condition [Unknown]
  - White blood cell count decreased [Unknown]
  - COVID-19 pneumonia [Unknown]
  - Therapeutic product effect incomplete [Unknown]
  - Back pain [Unknown]

NARRATIVE: CASE EVENT DATE: 2020
